FAERS Safety Report 6841517-X (Version None)
Quarter: 2010Q3

REPORT INFORMATION
  Report Type: 
  Country: None (occurrence: None)
  Receive Date: 20100714
  Receipt Date: 20070709
  Transmission Date: 20110219
  Serious: No
  Sender: FDA-Public Use
  Company Number: US-PFIZER INC-2007057292

PATIENT
  Sex: Female
  Weight: 54.9 kg

DRUGS (22)
  1. CHANTIX [Suspect]
     Indication: SMOKING CESSATION THERAPY
     Dates: start: 20070501, end: 20070511
  2. FOSAMAX [Concomitant]
  3. MORPHINE SULFATE [Concomitant]
  4. ALL OTHER THERAPEUTIC PRODUCTS [Concomitant]
  5. UNITHROID [Concomitant]
  6. ACYCLOVIR [Concomitant]
  7. PRILOSEC [Concomitant]
  8. DYAZIDE [Concomitant]
  9. PROVIGIL [Concomitant]
  10. LIDODERM [Concomitant]
  11. NYSTATIN [Concomitant]
  12. LEKOVIT CA [Concomitant]
  13. ACETYLSALICYLIC ACID [Concomitant]
  14. CYMBALTA [Concomitant]
  15. NIASPAN [Concomitant]
  16. PRAVACHOL [Concomitant]
  17. DIAZEPAM [Concomitant]
  18. VITAMIN B6 [Concomitant]
  19. CRANBERRY [Concomitant]
  20. SELENIUM [Concomitant]
  21. VITAMIN C [Concomitant]
  22. ZINC [Concomitant]
     Indication: CONSTIPATION

REACTIONS (4)
  - EATING DISORDER [None]
  - NAUSEA [None]
  - NIGHTMARE [None]
  - VOMITING [None]
